FAERS Safety Report 5162460-0 (Version None)
Quarter: 2006Q4

REPORT INFORMATION
  Report Type: 
  Country: None (occurrence: None)
  Receive Date: 20061128
  Receipt Date: 20061128
  Transmission Date: 20070319
  Serious: Yes (Hospitalization)
  Sender: FDA-Public Use
  Company Number: None

PATIENT
  Sex: Female
  Weight: 117.028 kg

DRUGS (1)
  1. DEPODUR [Suspect]
     Indication: PAIN MANAGEMENT
     Dosage: 10 MG EPIDURALLY
     Route: 008
     Dates: start: 20060517

REACTIONS (3)
  - ABASIA [None]
  - ANAESTHETIC COMPLICATION [None]
  - SEDATION [None]
